FAERS Safety Report 7542951-5 (Version None)
Quarter: 2011Q2

REPORT INFORMATION
  Report Type: 
  Country: None (occurrence: None)
  Receive Date: 20110613
  Receipt Date: 20110531
  Transmission Date: 20111010
  Serious: Yes (Other)
  Sender: FDA-Public Use
  Company Number: PHHY2011US48250

PATIENT

DRUGS (1)
  1. VALTURNA [Suspect]
     Dosage: 150 MG ALIS AND 160 MG VALS, UNK

REACTIONS (3)
  - HYPERTENSION [None]
  - DIZZINESS [None]
  - HEADACHE [None]
